FAERS Safety Report 10395725 (Version 3)
Quarter: 2014Q3

REPORT INFORMATION
  Report Type: Spontaneous
  Country: VE (occurrence: VE)
  Receive Date: 20140820
  Receipt Date: 20140902
  Transmission Date: 20150326
  Serious: Yes (Other)
  Sender: FDA-Public Use
  Company Number: PHHY2014VE103097

PATIENT
  Age: 30 Year
  Sex: Female

DRUGS (3)
  1. FENOBARBITAL [Concomitant]
     Active Substance: PHENOBARBITAL
     Indication: CONVULSION
     Dosage: 100 MG, IN THE AFTERNOON WITH TEGRETOL TREATMENT
     Dates: start: 19820818
  2. TEGRETOL-XR [Suspect]
     Active Substance: CARBAMAZEPINE
     Indication: CONVULSION
     Dosage: 800 MG, DAILY
     Route: 048
     Dates: start: 19820818, end: 20130720
  3. TEGRETOL-XR [Suspect]
     Active Substance: CARBAMAZEPINE
     Dosage: 1000 MG, DAILY
     Route: 048
     Dates: start: 20130720

REACTIONS (9)
  - Nervous system disorder [Not Recovered/Not Resolved]
  - Head discomfort [Recovering/Resolving]
  - Somnolence [Recovering/Resolving]
  - Paralysis [Unknown]
  - Hydrocephalus [Not Recovered/Not Resolved]
  - Pain [Not Recovered/Not Resolved]
  - Convulsion [Recovering/Resolving]
  - Dizziness [Recovering/Resolving]
  - Drug level decreased [Not Recovered/Not Resolved]

NARRATIVE: CASE EVENT DATE: 20120720
